FAERS Safety Report 5084333-4 (Version None)
Quarter: 2006Q3

REPORT INFORMATION
  Report Type: 
  Country: None (occurrence: None)
  Receive Date: 20060817
  Receipt Date: 20060817
  Transmission Date: 20061208
  Serious: Yes (Hospitalization, Other)
  Sender: FDA-Public Use
  Company Number: None

PATIENT
  Sex: Female

DRUGS (4)
  1. CELEBREX [Suspect]
     Indication: RHEUMATOID ARTHRITIS
     Dosage: 200 MG BID PRN PO
     Route: 048
  2. METHOTREXATE [Concomitant]
  3. PREDNISONE [Concomitant]
  4. HYDROXYCHLORAQUINE [Concomitant]

REACTIONS (1)
  - MYOCARDIAL INFARCTION [None]
